FAERS Safety Report 8063814-5 (Version None)
Quarter: 2012Q1

REPORT INFORMATION
  Report Type: 
  Country: None (occurrence: None)
  Receive Date: 20120123
  Receipt Date: 20120116
  Transmission Date: 20120608
  Serious: Yes (Other)
  Sender: FDA-Public Use
  Company Number: US-BAYER-2012-006041

PATIENT
  Age: 67 Year
  Sex: Female

DRUGS (7)
  1. LAMOTRIGINE [Suspect]
     Indication: BIPOLAR II DISORDER
     Dosage: 25MG
  2. ALEVE (CAPLET) [Suspect]
     Indication: MUSCLE STRAIN
  3. EZETIMIBE [Concomitant]
     Dosage: 10/80
  4. FLUOXETINE HYDROCHLORIDE [Concomitant]
     Dosage: UNK
  5. ACETAMINOPHEN [Suspect]
     Indication: MUSCLE STRAIN
  6. PREDNISONE [Concomitant]
     Dosage: 15MG
  7. LISINOPRIL [Concomitant]
     Dosage: 5 MG, QD

REACTIONS (3)
  - GASTRIC DISORDER [None]
  - FEELING ABNORMAL [None]
  - MUSCLE STRAIN [None]
